FAERS Safety Report 8982434 (Version 1)
Quarter: 2012Q4

REPORT INFORMATION
  Report Type: 
  Country: US (occurrence: US)
  Receive Date: 20121222
  Receipt Date: 20121222
  Transmission Date: 20130627
  Serious: No
  Sender: FDA-Public Use
  Company Number: US-ASTRAZENECA-2012SE88214

PATIENT
  Age: 54 Year
  Sex: Male
  Weight: 83.9 kg

DRUGS (4)
  1. NEXIUM [Suspect]
     Indication: GASTROOESOPHAGEAL REFLUX DISEASE
     Route: 048
  2. NEXIUM [Suspect]
     Indication: GASTROOESOPHAGEAL REFLUX DISEASE
     Dosage: 20 MG DELAYER RELEASE DAILY
     Route: 048
  3. HYDROCODONE [Concomitant]
  4. FLEXERIL [Concomitant]

REACTIONS (4)
  - Oesophageal discomfort [Unknown]
  - Abdominal discomfort [Unknown]
  - Diarrhoea [Unknown]
  - Drug dose omission [Unknown]
